FAERS Safety Report 12764316 (Version 2)
Quarter: 2016Q3

REPORT INFORMATION
  Report Type: Spontaneous
  Country: US (occurrence: US)
  Receive Date: 20160920
  Receipt Date: 20160929
  Transmission Date: 20161109
  Serious: No
  Sender: FDA-Public Use
  Company Number: US-PFIZER INC-2016430295

PATIENT
  Age: 43 Year
  Sex: Male
  Weight: 80.5 kg

DRUGS (15)
  1. XALKORI [Suspect]
     Active Substance: CRIZOTINIB
     Indication: OESOPHAGEAL CARCINOMA
     Dosage: 250 MG, 2X/DAY
     Route: 048
  2. OXYCONTIN [Concomitant]
     Active Substance: OXYCODONE HYDROCHLORIDE
     Indication: PAIN
     Dosage: 40 MG, 2X/DAY
     Route: 048
  3. ELIQUIS [Suspect]
     Active Substance: APIXABAN
     Dosage: 5 MG, CYCLIC (TAKE 2 PO BID FOR 7 DAYS THEN 1 PO BID)
     Route: 048
  4. PROCHLORPERAZINE MALEATE. [Concomitant]
     Active Substance: PROCHLORPERAZINE MALEATE
     Indication: NAUSEA
     Dosage: 10 MG, AS NEEDED (Q6H)
     Route: 048
  5. LOMOTIL [Suspect]
     Active Substance: ATROPINE SULFATE\DIPHENOXYLATE HYDROCHLORIDE
     Indication: BOWEL MOVEMENT IRREGULARITY
     Dosage: UNK (ATROPINE SULFATE: 0.025MG/DIPHENOXYLATE HCL: 2.5 MG) (MAY TAKE 1-2 TABLETS)
     Route: 048
  6. ZOLOFT [Suspect]
     Active Substance: SERTRALINE HYDROCHLORIDE
     Dosage: 50 MG, DAILY
     Route: 048
  7. CIALIS [Concomitant]
     Active Substance: TADALAFIL
     Dosage: 10 MG, AS NEEDED
     Route: 048
  8. CIPRO [Concomitant]
     Active Substance: CIPROFLOXACIN HYDROCHLORIDE
     Dosage: 500 MG, 2X/DAY
     Route: 048
  9. LORAZEPAM. [Concomitant]
     Active Substance: LORAZEPAM
     Indication: NAUSEA
     Dosage: 0.5 MG, AS NEEDED (Q4H)
     Route: 048
  10. NAPROSYN [Concomitant]
     Active Substance: NAPROXEN
     Dosage: 500 MG, AS NEEDED (BID )
     Route: 048
  11. PREDNISONE. [Concomitant]
     Active Substance: PREDNISONE
     Dosage: 5 MG, AS NEEDED
     Route: 048
  12. KETOROLAC TROMETHAMINE. [Concomitant]
     Active Substance: KETOROLAC TROMETHAMINE
     Dosage: 10 MG, UNK (Q4-6H)
     Route: 048
  13. ONDANSETRON HCL [Concomitant]
     Active Substance: ONDANSETRON HYDROCHLORIDE
     Dosage: 8 MG, AS NEEDED (BID)
     Route: 048
  14. PROCRIT [Concomitant]
     Active Substance: ERYTHROPOIETIN
     Dosage: 40000 IU, WEEKLY
     Route: 058
  15. SUCRALFATE. [Concomitant]
     Active Substance: SUCRALFATE
     Dosage: 1 G, 4X/DAY
     Route: 048

REACTIONS (7)
  - Cough [Unknown]
  - Abdominal pain [Not Recovered/Not Resolved]
  - Malaise [Unknown]
  - Nausea [Not Recovered/Not Resolved]
  - Pyrexia [Unknown]
  - Wheezing [Unknown]
  - Product use issue [Unknown]
